FAERS Safety Report 10378488 (Version 1)
Quarter: 2014Q1

REPORT INFORMATION
  Report Type: Spontaneous
  Country: US (occurrence: None)
  Receive Date: 20140306
  Receipt Date: 20140306
  Transmission Date: 20141002
  Serious: Yes (Hospitalization)
  Sender: FDA-Public Use
  Company Number: 163-21880-13014524

PATIENT
  Age: 64 Year
  Sex: Female
  Weight: 64.41 kg

DRUGS (3)
  1. REVLIMID (LENALIDOMIDE) (CAPSULES) [Suspect]
     Indication: MYELODYSPLASTIC SYNDROME
     Dosage: 10 MG, 21 IN 21 D, PO
     Route: 048
     Dates: start: 20111121
  2. FISH OIL (FISH OIL) (UNKNOWN) [Concomitant]
  3. VITAMIN B-6 (PYRIDOXINE HYDROCHLORIDE) (UNKNOWN) [Concomitant]

REACTIONS (3)
  - Ischaemic stroke [None]
  - Diarrhoea [None]
  - Respiratory tract infection [None]
